FAERS Safety Report 6608643-1 (Version None)
Quarter: 2010Q1

REPORT INFORMATION
  Report Type: 
  Country: None (occurrence: None)
  Receive Date: 20100226
  Receipt Date: 20100226
  Transmission Date: 20100710
  Serious: No
  Sender: FDA-Public Use
  Company Number: None

PATIENT
  Age: 65 Year
  Sex: Female
  Weight: 61.2356 kg

DRUGS (4)
  1. RISPERIDONE [Suspect]
     Dosage: 4 MG PO
     Route: 048
  2. OLANZAPINE [Concomitant]
  3. AMANTADINE HCL [Concomitant]
  4. BENZTROPINE MESYLATE [Concomitant]

REACTIONS (2)
  - DRY MOUTH [None]
  - DYSGEUSIA [None]
